FAERS Safety Report 5706900-4 (Version None)
Quarter: 2008Q2

REPORT INFORMATION
  Report Type: 
  Country: None (occurrence: None)
  Receive Date: 20080416
  Receipt Date: 20080404
  Transmission Date: 20081010
  Serious: Yes (Hospitalization)
  Sender: FDA-Public Use
  Company Number: US-ELI_LILLY_AND_COMPANY-US200804002248

PATIENT
  Sex: Female

DRUGS (7)
  1. HUMALOG [Suspect]
     Dosage: 8 U, UNK
  2. HUMALOG [Suspect]
     Dosage: 8 U, UNK
  3. HUMALOG [Suspect]
     Dosage: 8 U, UNK
  4. HUMALOG [Suspect]
     Dosage: 8 U, UNK
  5. HUMALOG [Suspect]
     Dosage: 8 U, UNK
     Route: 058
  6. LANTUS [Concomitant]
  7. LEVEMIR [Concomitant]

REACTIONS (7)
  - BLOOD GLUCOSE FLUCTUATION [None]
  - GLYCOSYLATED HAEMOGLOBIN DECREASED [None]
  - INJECTION SITE PAIN [None]
  - PAIN [None]
  - PANIC REACTION [None]
  - UPPER LIMB FRACTURE [None]
  - WRONG DRUG ADMINISTERED [None]
